FAERS Safety Report 12658647 (Version 1)
Quarter: 2016Q3

REPORT INFORMATION
  Report Type: Spontaneous
  Country: FR (occurrence: FR)
  Receive Date: 20160817
  Receipt Date: 20160817
  Transmission Date: 20161109
  Serious: Yes (Life-Threatening)
  Sender: FDA-Public Use
  Company Number: FR-SA-2016SA148715

PATIENT
  Sex: Male

DRUGS (16)
  1. CEFOTAXIME [Suspect]
     Active Substance: CEFOTAXIME SODIUM
     Route: 042
     Dates: start: 20160527
  2. SALBUTAMOL [Suspect]
     Active Substance: ALBUTEROL
     Route: 042
     Dates: start: 20160527, end: 20160530
  3. VENTOLINE [Concomitant]
     Active Substance: ALBUTEROL
  4. CORTANCYL [Suspect]
     Active Substance: PREDNISONE
     Route: 048
     Dates: start: 20160526, end: 20160526
  5. TAVANIC [Suspect]
     Active Substance: LEVOFLOXACIN
     Route: 065
     Dates: start: 20160527
  6. NIMBEX [Suspect]
     Active Substance: CISATRACURIUM BESYLATE
     Route: 042
     Dates: start: 20160527, end: 20160531
  7. SOLU-MEDROL [Suspect]
     Active Substance: METHYLPREDNISOLONE SODIUM SUCCINATE
     Dosage: TAKEN TO^2016
     Route: 042
     Dates: start: 2016
  8. LASILIX [Suspect]
     Active Substance: FUROSEMIDE
     Route: 048
     Dates: start: 20160526, end: 20160526
  9. SOLU-MEDROL [Suspect]
     Active Substance: METHYLPREDNISOLONE SODIUM SUCCINATE
     Dosage: TAKEN TO^2016
     Route: 042
     Dates: start: 20160527
  10. KETAMINE [Suspect]
     Active Substance: KETAMINE
     Route: 042
     Dates: start: 20160527, end: 20160531
  11. CELOCURINE [Suspect]
     Active Substance: SUCCINYLCHOLINE CHLORIDE
     Route: 042
     Dates: start: 20160527, end: 20160527
  12. SALBUTAMOL [Suspect]
     Active Substance: ALBUTEROL
     Route: 055
     Dates: start: 20160527
  13. ATROVENT [Suspect]
     Active Substance: IPRATROPIUM BROMIDE
     Route: 055
     Dates: start: 20160527
  14. LOXEN [Suspect]
     Active Substance: NICARDIPINE HYDROCHLORIDE
     Route: 048
     Dates: start: 20160531
  15. CIFLOX [Suspect]
     Active Substance: CIPROFLOXACIN
     Route: 042
     Dates: start: 20160531
  16. MAGNESIUM SULFATE. [Suspect]
     Active Substance: MAGNESIUM SULFATE
     Route: 042
     Dates: start: 20160527

REACTIONS (3)
  - Altered state of consciousness [Recovered/Resolved]
  - Cerebrovascular disorder [Recovered/Resolved with Sequelae]
  - Cerebrovascular accident [Recovered/Resolved with Sequelae]

NARRATIVE: CASE EVENT DATE: 20160601
